FAERS Safety Report 21422161 (Version 1)
Quarter: 2022Q4

REPORT INFORMATION
  Report Type: Spontaneous
  Country: US (occurrence: None)
  Receive Date: 20221006
  Receipt Date: 20221006
  Transmission Date: 20230113
  Serious: Yes (Hospitalization)
  Sender: FDA-Public Use
  Company Number: None

PATIENT
  Age: 60 Year
  Sex: Female
  Weight: 67.1 kg

DRUGS (8)
  1. ABEMACICLIB [Suspect]
     Active Substance: ABEMACICLIB
     Indication: Breast cancer metastatic
     Dates: start: 20220905, end: 20220923
  2. ANASTROZOLE [Concomitant]
     Active Substance: ANASTROZOLE
     Dates: start: 20220620
  3. COREG [Concomitant]
     Active Substance: CARVEDILOL
  4. CYCLOSPORINE [Concomitant]
     Active Substance: CYCLOSPORINE
  5. FUROSEMIDE [Concomitant]
     Active Substance: FUROSEMIDE
  6. HYDRALAZINE [Concomitant]
     Active Substance: HYDRALAZINE HYDROCHLORIDE
  7. LORAZEPAM [Concomitant]
     Active Substance: LORAZEPAM
  8. OMEPRAZOLE [Concomitant]
     Active Substance: OMEPRAZOLE

REACTIONS (14)
  - Fatigue [None]
  - Myalgia [None]
  - Hypotension [None]
  - Acute kidney injury [None]
  - Hyperkalaemia [None]
  - Metabolic acidosis [None]
  - Blood creatine phosphokinase increased [None]
  - Transaminases increased [None]
  - Thrombocytopenia [None]
  - Renal tubular necrosis [None]
  - Rhabdomyolysis [None]
  - Hypovolaemia [None]
  - Hypotension [None]
  - Drug level increased [None]

NARRATIVE: CASE EVENT DATE: 20220923
